FAERS Safety Report 5150540-5 (Version None)
Quarter: 2006Q4

REPORT INFORMATION
  Report Type: 
  Country: None (occurrence: None)
  Receive Date: 20061110
  Receipt Date: 20061110
  Transmission Date: 20070319
  Serious: Yes (Other)
  Sender: FDA-Public Use
  Company Number: None

PATIENT
  Age: 33 Year
  Sex: Female
  Weight: 102.0593 kg

DRUGS (2)
  1. ACETAMINOPHEN [Suspect]
     Indication: PAIN
     Dosage: 2 500MG CAPLETS   ONCE  PO; 3 500MG CAPLETS 3 TIMES PO
     Route: 048
     Dates: start: 20061003, end: 20061109
  2. ACETAMINOPHEN [Suspect]
     Indication: PYREXIA
     Dosage: 2 500MG CAPLETS   ONCE  PO; 3 500MG CAPLETS 3 TIMES PO
     Route: 048
     Dates: start: 20061003, end: 20061109

REACTIONS (1)
  - ABDOMINAL PAIN UPPER [None]
